FAERS Safety Report 8234779-8 (Version None)
Quarter: 2012Q1

REPORT INFORMATION
  Report Type: 
  Country: None (occurrence: None)
  Receive Date: 20120326
  Receipt Date: 20120313
  Transmission Date: 20120608
  Serious: Yes (Hospitalization)
  Sender: FDA-Public Use
  Company Number: NL-AMGEN-NLDSP2012010213

PATIENT
  Age: 54 Year

DRUGS (28)
  1. GRANISETRON [Concomitant]
     Dosage: 2 MG, UNK
     Dates: start: 20051122
  2. OXYCODONE HCL [Concomitant]
     Dosage: 5 MG, PRN
     Dates: start: 20051111
  3. POLYETHYLENE GLYCOL [Concomitant]
     Dosage: UNK
     Dates: start: 20051020
  4. RAMIPRIL [Concomitant]
     Dosage: 2.5 MG, UNK
  5. VITAMIN B12                        /00056201/ [Concomitant]
     Dosage: UNK
     Dates: end: 20060104
  6. APREPITANT [Concomitant]
     Dosage: 125 MG, UNK
     Dates: start: 20060105, end: 20060105
  7. CARBASALATE [Concomitant]
     Dosage: 30 MG, UNK
     Dates: start: 20050905
  8. PREDNISONE TAB [Concomitant]
     Dosage: 15 MG, UNK
     Dates: start: 20051104
  9. PAROXETINE HCL [Concomitant]
     Dosage: 20 MG, UNK
     Dates: start: 20040101
  10. ATORVASTATIN [Concomitant]
     Dosage: 10 MG, UNK
  11. LEVOMEPROMAZINE [Concomitant]
     Dosage: 50 MG, UNK
     Dates: start: 20060109, end: 20060113
  12. TEMAZEPAM [Concomitant]
     Dosage: 10 MG, UNK
     Dates: start: 20051104
  13. CISPLATIN [Concomitant]
     Dosage: 2300 MG, UNK
     Dates: start: 20050101, end: 20060105
  14. FENTANYL [Concomitant]
     Dosage: 4 MG, UNK
     Dates: start: 20051122
  15. MIRTAZAPINE [Concomitant]
     Dosage: 15 MG, UNK
     Dates: start: 20051114
  16. METOCLOPRAMIDE [Concomitant]
     Dosage: 30 MG, UNK
     Dates: start: 20040101
  17. MAGNESIUM HYDROXIDE TAB [Concomitant]
     Dosage: UNK
  18. PANTOPRAZOLE [Concomitant]
     Dosage: 40 MG, UNK
  19. ARANESP [Suspect]
     Indication: PRODUCT USED FOR UNKNOWN INDICATION
     Dosage: 500 MUG, Q3WK
     Dates: start: 20051203, end: 20060106
  20. GEMZAR [Concomitant]
     Dosage: 150 MG, UNK
     Dates: start: 20050101, end: 20060105
  21. MAALOX                             /00082501/ [Concomitant]
  22. MORPHINE [Concomitant]
     Dosage: 50 MG, UNK
     Dates: start: 20040101
  23. VITAMIN TAB [Concomitant]
     Dosage: UNK
  24. SCOPODERM                          /00008701/ [Concomitant]
     Dosage: 1.5 MG, UNK
     Dates: start: 20051211
  25. ONDANSETRON [Concomitant]
     Dosage: 16 MG, UNK
     Dates: start: 20051103
  26. RANITIDINE [Concomitant]
     Dosage: 300 MG, UNK
     Dates: start: 20040101
  27. ACETAMINOPHEN [Concomitant]
     Dosage: 400 MG, UNK
     Dates: start: 20040101
  28. DIPYRIDAMOL [Concomitant]
     Dosage: 300 MG, UNK

REACTIONS (5)
  - DEHYDRATION [None]
  - NAUSEA [None]
  - DYSPHAGIA [None]
  - DECREASED APPETITE [None]
  - OESOPHAGITIS [None]
